FAERS Safety Report 8231673-3 (Version None)
Quarter: 2012Q1

REPORT INFORMATION
  Report Type: 
  Country: None (occurrence: None)
  Receive Date: 20120323
  Receipt Date: 20120314
  Transmission Date: 20120608
  Serious: Yes (Death, Other)
  Sender: FDA-Public Use
  Company Number: CN-MPIJNJ-2012-00218

PATIENT

DRUGS (12)
  1. MECOBALAMIN [Concomitant]
     Dosage: 500 MG, UNK
  2. ADENOSINE [Concomitant]
     Dosage: 40 MG, UNK
     Route: 042
  3. VELCADE [Suspect]
     Indication: MULTIPLE MYELOMA
     Dosage: 2 MG, UNK
     Route: 042
     Dates: start: 20111130, end: 20120103
  4. OMEPRAZOLE [Concomitant]
     Dosage: 40 MG, UNK
     Route: 042
  5. GLUTATHIONE [Concomitant]
     Dosage: 2.4 G, UNK
  6. CIMETIDINE [Concomitant]
  7. ASPIRIN [Concomitant]
     Indication: CORONARY ARTERY DISEASE
  8. GRANISETRON [Concomitant]
     Dosage: 3 MG, UNK
     Route: 042
  9. FUROSEMIDE [Concomitant]
  10. DEXAMETHASONE [Concomitant]
     Dosage: 10 MG, UNK
     Route: 042
  11. GLYCYRRHIZA EXTRACT [Concomitant]
     Dosage: 80 ML, UNK
  12. SALVIA MILTIORRHIZA [Concomitant]

REACTIONS (2)
  - ASTHMA [None]
  - RESPIRATORY FAILURE [None]
